FAERS Safety Report 9804218 (Version 1)
Quarter: 2014Q1

REPORT INFORMATION
  Report Type: Spontaneous
  Country: US (occurrence: None)
  Receive Date: 20140106
  Receipt Date: 20140106
  Transmission Date: 20141002
  Serious: Yes (Other)
  Sender: FDA-Public Use
  Company Number: 2013-00164

PATIENT
  Sex: Female

DRUGS (1)
  1. UNSPECIFIED ZICAM PRODUCT [Suspect]
     Indication: INFLUENZA
     Dosage: 2009/2010
     Route: 045
     Dates: end: 2010

REACTIONS (3)
  - Anosmia [None]
  - Hyposmia [None]
  - Depression [None]
